FAERS Safety Report 12325350 (Version 2)
Quarter: 2016Q2

REPORT INFORMATION
  Report Type: Spontaneous
  Country: DE (occurrence: DE)
  Receive Date: 20160502
  Receipt Date: 20160505
  Transmission Date: 20160815
  Serious: Yes (Death, Hospitalization, Other)
  Sender: FDA-Public Use
  Company Number: DE-ASTRAZENECA-2016SE47189

PATIENT
  Age: 76 Year
  Sex: Female
  Weight: 53 kg

DRUGS (7)
  1. OMEPRAZOLE. [Suspect]
     Active Substance: OMEPRAZOLE
     Route: 048
  2. GABAPENTIN. [Suspect]
     Active Substance: GABAPENTIN
     Route: 065
  3. DABIGATRAN [Suspect]
     Active Substance: DABIGATRAN
     Route: 065
  4. IBUPROFEN. [Interacting]
     Active Substance: IBUPROFEN
     Indication: PAIN IN EXTREMITY
     Route: 065
  5. HYDROCHLOROTHIAZIDE. [Suspect]
     Active Substance: HYDROCHLOROTHIAZIDE
     Route: 065
  6. NEBIVOLOL. [Suspect]
     Active Substance: NEBIVOLOL
     Route: 065
  7. LOSARTAN. [Interacting]
     Active Substance: LOSARTAN
     Route: 065

REACTIONS (12)
  - Acute kidney injury [Unknown]
  - Anti-neutrophil cytoplasmic antibody positive vasculitis [Unknown]
  - Gastrointestinal haemorrhage [Unknown]
  - Self-medication [Unknown]
  - Chronic kidney disease [Unknown]
  - Haemorrhagic anaemia [Unknown]
  - Intentional overdose [Unknown]
  - Infection [Unknown]
  - Drug interaction [Unknown]
  - Sepsis [Fatal]
  - Acute respiratory failure [Unknown]
  - Labelled drug-drug interaction medication error [Unknown]
